FAERS Safety Report 18099083 (Version 1)
Quarter: 2020Q3

REPORT INFORMATION
  Report Type: Spontaneous
  Country: US (occurrence: US)
  Receive Date: 20200731
  Receipt Date: 20200731
  Transmission Date: 20201103
  Serious: Yes (Hospitalization)
  Sender: FDA-Public Use
  Company Number: None

PATIENT
  Age: 83 Year
  Sex: Female

DRUGS (11)
  1. POT CHLORIDE [Concomitant]
     Active Substance: POTASSIUM CHLORIDE
  2. TORSEMIDE. [Concomitant]
     Active Substance: TORSEMIDE
  3. SILDENAFIL. [Suspect]
     Active Substance: SILDENAFIL
     Indication: PULMONARY ARTERIAL HYPERTENSION
     Route: 048
     Dates: start: 20181106
  4. ATORVASTATIN [Concomitant]
     Active Substance: ATORVASTATIN
  5. GLIPIZIDE. [Concomitant]
     Active Substance: GLIPIZIDE
  6. LEVOTHYROXIN [Concomitant]
     Active Substance: LEVOTHYROXINE
  7. LOSARTAN. [Concomitant]
     Active Substance: LOSARTAN
  8. FUROSEMIDE. [Concomitant]
     Active Substance: FUROSEMIDE
  9. MAG OXIDE [Concomitant]
     Active Substance: MAGNESIUM OXIDE
  10. AMLODIPINE [Concomitant]
     Active Substance: AMLODIPINE BESYLATE
  11. ELIQUIS [Concomitant]
     Active Substance: APIXABAN

REACTIONS (1)
  - Hospitalisation [None]
